FAERS Safety Report 5142014-2 (Version None)
Quarter: 2006Q4

REPORT INFORMATION
  Report Type: 
  Country: None (occurrence: None)
  Receive Date: 20061102
  Receipt Date: 20061020
  Transmission Date: 20070319
  Serious: Yes (Hospitalization, Other)
  Sender: FDA-Public Use
  Company Number: PHHO2006JP17580

PATIENT
  Age: 56 Year
  Sex: Female

DRUGS (4)
  1. PERDIPINE [Concomitant]
     Indication: HYPERTENSION
     Dosage: 40 MG, UNK
     Route: 048
     Dates: start: 19991027, end: 20060227
  2. THYRADIN S [Concomitant]
     Indication: HYPERTHYROIDISM
     Route: 048
     Dates: start: 19991027, end: 20060227
  3. MEVALOTIN [Concomitant]
     Indication: HYPERCHOLESTEROLAEMIA
     Route: 048
     Dates: start: 20021023, end: 20060227
  4. DIOVAN [Suspect]
     Indication: HYPERTENSION
     Dosage: 40 MG, QD
     Route: 048
     Dates: start: 20030305, end: 20060227

REACTIONS (2)
  - CEREBRAL HAEMORRHAGE [None]
  - SURGERY [None]
